FAERS Safety Report 15135238 (Version 3)
Quarter: 2018Q3

REPORT INFORMATION
  Report Type: Report from Study
  Country: CA (occurrence: CA)
  Receive Date: 20180712
  Receipt Date: 20180731
  Transmission Date: 20181010
  Serious: Yes (Other)
  Sender: FDA-Public Use
  Company Number: CA-GLAXOSMITHKLINE-CA2018GSK121843

PATIENT
  Age: 56 Year
  Sex: Female

DRUGS (1)
  1. MEPOLIZUMAB [Suspect]
     Active Substance: MEPOLIZUMAB
     Indication: ASTHMA
     Dosage: 100 MG, Z, MONTHLY
     Route: 042
     Dates: start: 20180213

REACTIONS (14)
  - Lower respiratory tract infection [Unknown]
  - Asthma [Unknown]
  - Productive cough [Not Recovered/Not Resolved]
  - Aphasia [Unknown]
  - Lung disorder [Unknown]
  - Nausea [Unknown]
  - Haemoptysis [Not Recovered/Not Resolved]
  - Pulmonary pain [Unknown]
  - Drug ineffective [Unknown]
  - Choking [Unknown]
  - Throat tightness [Unknown]
  - Malaise [Unknown]
  - Cough [Unknown]
  - Drug specific antibody [Unknown]

NARRATIVE: CASE EVENT DATE: 201806
